FAERS Safety Report 21596211 (Version 2)
Quarter: 2022Q4

REPORT INFORMATION
  Report Type: Other
  Country: PL (occurrence: PL)
  Receive Date: 20221115
  Receipt Date: 20221122
  Transmission Date: 20230112
  Serious: Yes (Hospitalization)
  Sender: FDA-Public Use
  Company Number: PL-PFIZER INC-PV202200095587

PATIENT
  Age: 67 Year
  Sex: Male

DRUGS (2)
  1. RITUXIMAB [Suspect]
     Active Substance: RITUXIMAB
     Indication: Product used for unknown indication
     Route: 065
  2. CYCLOPHOSPHAMIDE [Suspect]
     Active Substance: CYCLOPHOSPHAMIDE
     Indication: Product used for unknown indication
     Route: 065

REACTIONS (5)
  - Skin lesion [Unknown]
  - Paraneoplastic pemphigus [Unknown]
  - Disease progression [Unknown]
  - Drug ineffective [Unknown]
  - Antibody test negative [Unknown]
